FAERS Safety Report 7454896-X (Version None)
Quarter: 2011Q2

REPORT INFORMATION
  Report Type: 
  Country: None (occurrence: None)
  Receive Date: 20110503
  Receipt Date: 20110422
  Transmission Date: 20111010
  Serious: Yes (Death)
  Sender: FDA-Public Use
  Company Number: JP-CELGENEUS-087-21660-11043257

PATIENT
  Age: 69 Year
  Sex: Female

DRUGS (2)
  1. ABRAXANE [Suspect]
     Indication: BREAST CANCER
     Dosage: 140 MILLIGRAM
     Route: 041
     Dates: start: 20110329, end: 20110329
  2. ABRAXANE [Suspect]
     Route: 041
     Dates: start: 20110412, end: 20110412

REACTIONS (2)
  - WHITE BLOOD CELL COUNT DECREASED [None]
  - INTERSTITIAL LUNG DISEASE [None]
